FAERS Safety Report 5148422-8 (Version None)
Quarter: 2006Q4

REPORT INFORMATION
  Report Type: 
  Country: None (occurrence: None)
  Receive Date: 20061110
  Receipt Date: 20050912
  Transmission Date: 20070319
  Serious: Yes (Other)
  Sender: FDA-Public Use
  Company Number: BE-ABBOTT-05P-056-0311275-00

PATIENT
  Age: 46 Year
  Sex: Male

DRUGS (7)
  1. FENOFIBRATE [Suspect]
     Indication: MIXED HYPERLIPIDAEMIA
     Route: 048
     Dates: start: 20031201, end: 20031230
  2. TELMISARTAN [Suspect]
     Indication: DRUG USE FOR UNKNOWN INDICATION
     Dates: start: 20021030
  3. MOTILIUM [Suspect]
     Indication: DRUG USE FOR UNKNOWN INDICATION
     Dates: start: 20031230, end: 20031230
  4. MOTILIUM [Suspect]
     Dates: start: 20031230
  5. PLACEBO [Concomitant]
     Indication: DRUG USE FOR UNKNOWN INDICATION
     Dates: start: 20030908, end: 20031229
  6. GLUCOPHAGE [Concomitant]
     Indication: DRUG USE FOR UNKNOWN INDICATION
     Dates: start: 20021030
  7. MICONAZOLE NITRATE [Concomitant]
     Indication: DRUG USE FOR UNKNOWN INDICATION
     Dates: start: 20031226

REACTIONS (10)
  - ANGIONEUROTIC OEDEMA [None]
  - DIABETIC FOOT [None]
  - DYSPHAGIA [None]
  - FLUSHING [None]
  - HICCUPS [None]
  - LARYNGEAL OEDEMA [None]
  - LOCALISED INFECTION [None]
  - OESOPHAGITIS [None]
  - SWOLLEN TONGUE [None]
  - TOXIC SKIN ERUPTION [None]
